FAERS Safety Report 9510036 (Version 2)
Quarter: 2013Q3

REPORT INFORMATION
  Report Type: Spontaneous
  Country: US (occurrence: US)
  Receive Date: 20130909
  Receipt Date: 20130909
  Transmission Date: 20140515
  Serious: No
  Sender: FDA-Public Use
  Company Number: US-BRISTOL-MYERS SQUIBB COMPANY-17149014

PATIENT
  Age: 49 Year
  Sex: Female
  Weight: 74.37 kg

DRUGS (1)
  1. ABILIFY TABS 10 MG [Suspect]
     Indication: POST-TRAUMATIC STRESS DISORDER
     Dosage: INTERRUPTED AND RESTARTED

REACTIONS (6)
  - Confusional state [Unknown]
  - Memory impairment [Unknown]
  - Headache [Unknown]
  - Weight decreased [Unknown]
  - Hypercholesterolaemia [Unknown]
  - Wrong technique in drug usage process [Unknown]
